FAERS Safety Report 5811688-2 (Version None)
Quarter: 2008Q3

REPORT INFORMATION
  Report Type: 
  Country: None (occurrence: None)
  Receive Date: 20080716
  Receipt Date: 20080708
  Transmission Date: 20090109
  Serious: Yes (Hospitalization, Congenital Anomaly)
  Sender: FDA-Public Use
  Company Number: A0680425A

PATIENT
  Sex: Female
  Weight: 1 kg

DRUGS (4)
  1. PAXIL [Suspect]
     Indication: DEPRESSION
     Dosage: 20MG PER DAY
     Dates: start: 19990501, end: 20021001
  2. VITAMIN TAB [Concomitant]
  3. DEXAMETHASONE [Concomitant]
     Dates: start: 20030314
  4. MAGNESIUM SULFATE [Concomitant]
     Dates: start: 20030314

REACTIONS (8)
  - ATRIAL SEPTAL DEFECT [None]
  - CONGENITAL TRICUSPID VALVE INCOMPETENCE [None]
  - DEVELOPMENTAL DELAY [None]
  - DRUG EXPOSURE DURING PREGNANCY [None]
  - MULTIPLE CONGENITAL ABNORMALITIES [None]
  - PATENT DUCTUS ARTERIOSUS [None]
  - PULMONARY ARTERY STENOSIS CONGENITAL [None]
  - SPEECH DISORDER DEVELOPMENTAL [None]
